FAERS Safety Report 7331307-6 (Version None)
Quarter: 2011Q1

REPORT INFORMATION
  Report Type: 
  Country: None (occurrence: None)
  Receive Date: 20110304
  Receipt Date: 20110223
  Transmission Date: 20110831
  Serious: Yes (Hospitalization)
  Sender: FDA-Public Use
  Company Number: US-JNJFOC-20110107638

PATIENT
  Sex: Female
  Weight: 48.31 kg

DRUGS (29)
  1. MECLIZINE [Suspect]
     Indication: HALLUCINATION
     Route: 048
  2. LYRICA [Suspect]
     Indication: RHEUMATOID ARTHRITIS
     Route: 048
  3. METHOCARBAMOL [Suspect]
     Indication: RESTLESS LEGS SYNDROME
     Dosage: AS NEEDED
     Route: 048
  4. METHOCARBAMOL [Suspect]
     Indication: MUSCLE RELAXANT THERAPY
     Dosage: AS NEEDED
     Route: 048
  5. MECLIZINE [Suspect]
     Indication: AKATHISIA
     Route: 048
  6. METHOTREXATE [Suspect]
     Indication: RHEUMATOID ARTHRITIS
     Route: 065
  7. LYRICA [Suspect]
     Route: 048
  8. LYRICA [Suspect]
     Route: 048
  9. EFFEXOR XR [Suspect]
     Indication: HOT FLUSH
     Route: 048
  10. LORTAB [Suspect]
     Indication: RHEUMATOID ARTHRITIS
     Dosage: 7.5/500 MG
     Route: 048
  11. SEROQUEL [Suspect]
     Indication: ANXIETY
     Route: 048
  12. SOMA [Suspect]
     Indication: ANXIETY
     Route: 048
  13. OMEPRAZOLE [Concomitant]
     Indication: GASTROOESOPHAGEAL REFLUX DISEASE
     Route: 065
  14. LAMOTRIGINE [Suspect]
     Indication: HALLUCINATION
     Route: 048
  15. CYMBALTA [Suspect]
     Indication: ANXIETY
     Route: 048
  16. PROMETHAZINE [Concomitant]
     Indication: NAUSEA
     Route: 065
  17. PREDNISONE [Concomitant]
     Indication: RHEUMATOID ARTHRITIS
     Route: 065
  18. RISPERDAL [Suspect]
     Indication: ANXIETY
     Route: 065
  19. LYRICA [Suspect]
     Indication: RESTLESS LEGS SYNDROME
     Route: 048
  20. RISPERDAL [Suspect]
     Route: 065
  21. BENZTROPINE MESYLATE [Suspect]
     Indication: AKATHISIA
     Route: 048
  22. FERROUS SULFATE TAB [Concomitant]
     Indication: ANAEMIA
     Route: 065
  23. BENZTROPINE MESYLATE [Suspect]
     Indication: HALLUCINATION
     Route: 048
  24. LORAZEPAM [Suspect]
     Indication: ANXIETY
     Route: 048
  25. LORAZEPAM [Suspect]
     Route: 048
  26. LORAZEPAM [Suspect]
     Route: 048
  27. CYMBALTA [Suspect]
     Route: 048
  28. FOLIC ACID [Concomitant]
     Indication: MEDICAL DIET
     Route: 065
  29. ALBUTEROL [Concomitant]
     Indication: RHINITIS SEASONAL
     Dosage: 2 PUFFS AS NEEDED
     Route: 065

REACTIONS (1)
  - PSYCHOTIC DISORDER [None]
